FAERS Safety Report 7832114-8 (Version None)
Quarter: 2011Q4

REPORT INFORMATION
  Report Type: 
  Country: None (occurrence: None)
  Receive Date: 20111022
  Receipt Date: 20111016
  Transmission Date: 20120403
  Serious: Yes (Other)
  Sender: FDA-Public Use
  Company Number: US-BAYER-2011-100925

PATIENT
  Sex: Female

DRUGS (2)
  1. MIDOL MENSTRUAL COMPLETE CAPLETS [Suspect]
     Dosage: 1 DF, UNK
     Route: 048
     Dates: start: 20111014
  2. MIDOL MENSTRUAL COMPLETE CAPLETS [Suspect]
     Indication: DYSMENORRHOEA
     Dosage: 2 DF, UNK
     Route: 048
     Dates: start: 20110815

REACTIONS (2)
  - SYNCOPE [None]
  - CONVULSION [None]
